FAERS Safety Report 14446285 (Version 2)
Quarter: 2018Q1

REPORT INFORMATION
  Report Type: Spontaneous
  Country: JP (occurrence: JP)
  Receive Date: 20180126
  Receipt Date: 20180208
  Transmission Date: 20180509
  Serious: Yes (Death)
  Sender: FDA-Public Use
  Company Number: JP-ASTRAZENECA-2018SE09506

PATIENT
  Age: 66 Year
  Sex: Male
  Weight: 105 kg

DRUGS (2)
  1. FORXIGA [Suspect]
     Active Substance: DAPAGLIFLOZIN
     Indication: DIABETES MELLITUS
     Dosage: DOSE UNKNOWN
     Route: 048
     Dates: start: 20160908
  2. VILDAGLIPTIN/METFORMIN HYDROCHLORIDE COMBINED DRUG [Concomitant]
     Dosage: DOSE UNKNOWN
     Route: 048
     Dates: start: 20160630

REACTIONS (1)
  - Cardio-respiratory arrest [Fatal]
